FAERS Safety Report 7270374-5 (Version None)
Quarter: 2011Q1

REPORT INFORMATION
  Report Type: 
  Country: None (occurrence: None)
  Receive Date: 20110202
  Receipt Date: 20101217
  Transmission Date: 20110831
  Serious: Yes (Hospitalization)
  Sender: FDA-Public Use
  Company Number: US-BAYER-201017010NA

PATIENT
  Sex: Female
  Weight: 101.13 kg

DRUGS (13)
  1. OCELLA [Suspect]
     Dosage: UNK
     Dates: start: 20100205
  2. UNCODEABLE ^UNCLASSIFIABLE^ [Concomitant]
     Indication: HEADACHE
  3. OCELLA [Suspect]
     Dosage: UNK
     Dates: start: 20090504, end: 20090921
  4. YASMIN [Suspect]
     Indication: CONTRACEPTION
     Dosage: UNK UNK, QD
     Route: 048
     Dates: start: 20051201, end: 20060306
  5. YASMIN [Suspect]
     Dosage: UNK
     Dates: start: 20060725, end: 20080128
  6. OCELLA [Suspect]
     Dosage: UNK
     Dates: start: 20100624
  7. PREVACID [Concomitant]
     Route: 065
     Dates: start: 20080101, end: 20100101
  8. BENTYL [Concomitant]
     Dosage: UNK
     Dates: start: 20060124
  9. YAZ [Suspect]
     Indication: PRODUCT USED FOR UNKNOWN INDICATION
     Route: 048
  10. YASMIN [Suspect]
     Dosage: UNK
     Dates: start: 20080306
  11. OCELLA [Suspect]
     Indication: CONTRACEPTION
     Dosage: UNK
     Dates: start: 20080708, end: 20090327
  12. OCELLA [Suspect]
     Dosage: UNK
     Dates: start: 20100927
  13. ADDERALL XR 10 [Concomitant]
     Indication: ATTENTION DEFICIT/HYPERACTIVITY DISORDER
     Dosage: 30 MG, UNK
     Route: 048

REACTIONS (7)
  - CHOLELITHIASIS [None]
  - NAUSEA [None]
  - CHOLECYSTITIS CHRONIC [None]
  - CHEST PAIN [None]
  - VOMITING [None]
  - ABDOMINAL PAIN UPPER [None]
  - INCISION SITE PAIN [None]
